FAERS Safety Report 7555161-2 (Version None)
Quarter: 2011Q2

REPORT INFORMATION
  Report Type: 
  Country: None (occurrence: None)
  Receive Date: 20110617
  Receipt Date: 20110608
  Transmission Date: 20111010
  Serious: Yes (Hospitalization)
  Sender: FDA-Public Use
  Company Number: TW-ASTRAZENECA-2011SE34934

PATIENT
  Age: 78 Year
  Sex: Male

DRUGS (6)
  1. ATENOLOL [Concomitant]
     Indication: HYPERTENSION
     Dosage: 50 MG DAILY
  2. DONEPEZIL HCL [Concomitant]
     Dosage: 5 MG DAY
  3. WARFARIN SODIUM [Interacting]
     Indication: ATRIAL FIBRILLATION
     Dosage: 3.75 MG DAILY
  4. QUETIAPINE [Suspect]
     Indication: DELUSION
     Route: 048
  5. QUETIAPINE [Interacting]
     Indication: AGITATION
     Route: 048
  6. LACIDIPINE [Concomitant]
     Dosage: 4 MG/DAY

REACTIONS (4)
  - PROTHROMBIN TIME PROLONGED [None]
  - CEREBRAL HAEMORRHAGE [None]
  - INTERNATIONAL NORMALISED RATIO INCREASED [None]
  - DRUG INTERACTION [None]
